FAERS Safety Report 10771642 (Version 1)
Quarter: 2015Q1

REPORT INFORMATION
  Report Type: Spontaneous
  Country: US (occurrence: US)
  Receive Date: 20150206
  Receipt Date: 20150206
  Transmission Date: 20150721
  Serious: Yes (Hospitalization)
  Sender: FDA-Public Use
  Company Number: US-ACTELION-A-US2015-112180

PATIENT
  Age: 70 Year
  Sex: Male

DRUGS (12)
  1. VELETRI [Suspect]
     Active Substance: EPOPROSTENOL
     Indication: PULMONARY HYPERTENSION
     Dosage: 10.5 NG/KG, PER MIN
     Route: 042
     Dates: start: 20141026
  2. GLIPIZIDE. [Concomitant]
     Active Substance: GLIPIZIDE
  3. ULORIC [Concomitant]
     Active Substance: FEBUXOSTAT
  4. CLOPIDOGREL [Concomitant]
     Active Substance: CLOPIDOGREL BISULFATE
  5. ASPIRIN. [Concomitant]
     Active Substance: ASPIRIN
  6. GABAPENTIN. [Concomitant]
     Active Substance: GABAPENTIN
  7. SILDENAFIL. [Concomitant]
     Active Substance: SILDENAFIL
  8. COLCRYS [Concomitant]
     Active Substance: COLCHICINE
  9. SIMVASTATIN. [Concomitant]
     Active Substance: SIMVASTATIN
  10. METOPROLOL [Concomitant]
     Active Substance: METOPROLOL
  11. LISINOPRIL. [Concomitant]
     Active Substance: LISINOPRIL
  12. HYDRALAZINE [Concomitant]
     Active Substance: HYDRALAZINE HYDROCHLORIDE

REACTIONS (2)
  - Pyrexia [Recovering/Resolving]
  - Device dislocation [Recovering/Resolving]

NARRATIVE: CASE EVENT DATE: 20150123
